FAERS Safety Report 7148134-5 (Version None)
Quarter: 2010Q4

REPORT INFORMATION
  Report Type: 
  Country: None (occurrence: None)
  Receive Date: 20101209
  Receipt Date: 20101202
  Transmission Date: 20110411
  Serious: No
  Sender: FDA-Public Use
  Company Number: US-PFIZER INC-2010163190

PATIENT
  Sex: Female
  Weight: 51.2 kg

DRUGS (2)
  1. PRISTIQ [Suspect]
     Indication: DEPRESSION
     Dosage: 50 MG, UNK
     Route: 048
     Dates: start: 20100701
  2. ESTRATEST [Concomitant]
     Dosage: UNK

REACTIONS (1)
  - ABNORMAL DREAMS [None]
